FAERS Safety Report 6280115-6 (Version None)
Quarter: 2009Q3

REPORT INFORMATION
  Report Type: 
  Country: None (occurrence: None)
  Receive Date: 20090723
  Receipt Date: 20090713
  Transmission Date: 20100115
  Serious: Yes (Death)
  Sender: FDA-Public Use
  Company Number: JP-ABBOTT-09P-087-0586709-00

PATIENT
  Age: 78 Year
  Sex: Male

DRUGS (7)
  1. LEUPLIN SR FOR INJECTION 11.25 MG [Suspect]
     Indication: PROSTATE CANCER STAGE IV
     Route: 058
     Dates: start: 20070221, end: 20080130
  2. CASODEX [Concomitant]
     Indication: PROSTATE CANCER STAGE IV
     Route: 048
     Dates: start: 20060906, end: 20070815
  3. FLUTAMIDE [Concomitant]
     Indication: PROSTATE CANCER STAGE IV
     Route: 048
     Dates: start: 20070816, end: 20070830
  4. FLUTAMIDE [Concomitant]
     Route: 048
     Dates: start: 20071219, end: 20080204
  5. CHLORMADINONE ACETATE TAB [Concomitant]
     Indication: PROSTATE CANCER STAGE IV
     Route: 048
     Dates: start: 20071001
  6. DIETHYLSTILBESTROL [Concomitant]
     Indication: PROSTATE CANCER STAGE IV
     Route: 042
     Dates: start: 20070817, end: 20070826
  7. DIETHYLSTILBESTROL [Concomitant]
     Route: 042
     Dates: start: 20070827, end: 20070905

REACTIONS (1)
  - PROSTATE CANCER STAGE IV [None]
